FAERS Safety Report 13963678 (Version 1)
Quarter: 2017Q3

REPORT INFORMATION
  Report Type: Spontaneous
  Country: US (occurrence: US)
  Receive Date: 20170913
  Receipt Date: 20170913
  Transmission Date: 20171128
  Serious: No
  Sender: FDA-Public Use
  Company Number: US-JNJFOC-20170805581

PATIENT
  Sex: Female

DRUGS (3)
  1. AZITHROMYCIN ANHYDROUS. [Concomitant]
     Active Substance: AZITHROMYCIN ANHYDROUS
     Indication: TOOTH INFECTION
     Dosage: 2 DOSES ON DAY 1, 1 DOSE ON DAY 2 AND 3
     Route: 065
     Dates: start: 20170615, end: 20170618
  2. TRAMADOL HYDROCHLORIDE. [Suspect]
     Active Substance: TRAMADOL HYDROCHLORIDE
     Indication: PAIN
     Dosage: 6 TABLETS EVERY FOR 4-6 HOURS
     Route: 065
     Dates: start: 20170617, end: 20170619
  3. AZITHROMYCIN ANHYDROUS. [Concomitant]
     Active Substance: AZITHROMYCIN ANHYDROUS
     Indication: SINUSITIS
     Dosage: 2 DOSES ON DAY 1, 1 DOSE ON DAY 2 AND 3
     Route: 065
     Dates: start: 20170615, end: 20170618

REACTIONS (1)
  - Drug ineffective [Unknown]
